FAERS Safety Report 19131971 (Version 1)
Quarter: 2021Q2

REPORT INFORMATION
  Report Type: Spontaneous
  Country: CA (occurrence: CA)
  Receive Date: 20210413
  Receipt Date: 20210413
  Transmission Date: 20210717
  Serious: Yes (Hospitalization, Other)
  Sender: FDA-Public Use
  Company Number: CA-GLAXOSMITHKLINE-CACH2021AMR018630

PATIENT
  Age: 68 Year
  Sex: Female

DRUGS (1)
  1. IBUPROFEN. [Suspect]
     Active Substance: IBUPROFEN
     Indication: PAIN
     Dosage: 3 EVERY 1 DAYS, 16 DAYS

REACTIONS (3)
  - Gastrointestinal haemorrhage [Unknown]
  - Haemoglobin decreased [Unknown]
  - Transfusion [Unknown]
